FAERS Safety Report 24000152 (Version 1)
Quarter: 2024Q2

REPORT INFORMATION
  Report Type: Spontaneous
  Country: US (occurrence: None)
  Receive Date: 20240620
  Receipt Date: 20240620
  Transmission Date: 20240716
  Serious: Yes (Hospitalization)
  Sender: FDA-Public Use
  Company Number: None

PATIENT
  Age: 15 Year
  Sex: Female
  Weight: 57.6 kg

DRUGS (1)
  1. MONTELUKAST SODIUM [Suspect]
     Active Substance: MONTELUKAST SODIUM
     Indication: Dyspnoea
     Dates: start: 20230928, end: 20240109

REACTIONS (5)
  - Sleep terror [None]
  - Hallucination, visual [None]
  - Therapy cessation [None]
  - Hallucination, auditory [None]
  - Self-destructive behaviour [None]

NARRATIVE: CASE EVENT DATE: 20231211
